FAERS Safety Report 13403541 (Version 1)
Quarter: 2017Q2

REPORT INFORMATION
  Report Type: Spontaneous
  Country: US (occurrence: US)
  Receive Date: 20170404
  Receipt Date: 20170404
  Transmission Date: 20170830
  Serious: Yes (Other)
  Sender: FDA-Public Use
  Company Number: US-ASTRAZENECA-2017SE34470

PATIENT
  Age: 788 Month
  Sex: Female
  Weight: 77.1 kg

DRUGS (8)
  1. ASPIRIN. [Concomitant]
     Active Substance: ASPIRIN
     Indication: CARDIAC DISORDER
     Route: 048
  2. XANAX [Concomitant]
     Active Substance: ALPRAZOLAM
     Indication: DEATH OF RELATIVE
     Dosage: 1MG BUT USUALLY BREAKS, AS REQUIRED
     Route: 048
  3. BRILINTA [Suspect]
     Active Substance: TICAGRELOR
     Indication: STENT PLACEMENT
     Route: 048
     Dates: start: 20170215
  4. LISINOPRIL HYDROCHLOROTHYAZIDE [Suspect]
     Active Substance: HYDROCHLOROTHIAZIDE\LISINOPRIL
     Indication: BLOOD PRESSURE ABNORMAL
     Dosage: 20MG/12.5 MG EVERY DAY
     Route: 048
     Dates: start: 2012
  5. CLARITIN [Concomitant]
     Active Substance: LORATADINE
     Indication: SINUS DISORDER
     Route: 048
     Dates: start: 2016
  6. CLARITIN [Concomitant]
     Active Substance: LORATADINE
     Indication: DRUG HYPERSENSITIVITY
     Route: 048
     Dates: start: 2016
  7. RANEXA [Concomitant]
     Active Substance: RANOLAZINE
     Indication: ANGINA PECTORIS
     Route: 048
     Dates: start: 2016
  8. LOPRESSOR [Concomitant]
     Active Substance: METOPROLOL TARTRATE
     Indication: BLOOD PRESSURE ABNORMAL
     Route: 048
     Dates: start: 2012

REACTIONS (12)
  - Dry eye [Unknown]
  - Coronary artery occlusion [Unknown]
  - Scar [Unknown]
  - Neoplasm skin [Unknown]
  - Weight increased [Not Recovered/Not Resolved]
  - Angina pectoris [Unknown]
  - Hypersensitivity [Not Recovered/Not Resolved]
  - Decreased appetite [Recovered/Resolved]
  - Dizziness [Unknown]
  - Visual impairment [Not Recovered/Not Resolved]
  - Hyperphagia [Not Recovered/Not Resolved]
  - Vertigo [Unknown]

NARRATIVE: CASE EVENT DATE: 201607
